FAERS Safety Report 10016634 (Version 2)
Quarter: 2014Q1

REPORT INFORMATION
  Report Type: Spontaneous
  Country: RU (occurrence: RU)
  Receive Date: 20140317
  Receipt Date: 20140317
  Transmission Date: 20141002
  Serious: Yes (Other)
  Sender: FDA-Public Use
  Company Number: RU-ABBVIE-14P-251-1211277-00

PATIENT
  Sex: Female

DRUGS (2)
  1. RITONAVIR [Suspect]
     Indication: HIV INFECTION
  2. SAQUINAVIR [Suspect]
     Indication: HIV INFECTION

REACTIONS (1)
  - Foetal death [Unknown]
